FAERS Safety Report 9548655 (Version 1)
Quarter: 2013Q3

REPORT INFORMATION
  Report Type: Spontaneous
  Country: US (occurrence: None)
  Receive Date: 20130919
  Receipt Date: 20130919
  Transmission Date: 20140515
  Serious: Yes (Other)
  Sender: FDA-Public Use
  Company Number: USA/USA/13/0034552

PATIENT
  Age: 57 Year
  Sex: Female

DRUGS (2)
  1. IBUPROFEN [Suspect]
     Indication: PRODUCT USED FOR UNKNOWN INDICATION
     Dosage: AS REQUIRED
  2. DYAZIDE [Suspect]
     Indication: MENIERE^S DISEASE

REACTIONS (9)
  - Drug interaction [None]
  - Crystal nephropathy [None]
  - Proteinuria [None]
  - Glomerulosclerosis [None]
  - Renal tubular atrophy [None]
  - Kidney fibrosis [None]
  - Renal failure acute [None]
  - Nephrectasia [None]
  - Tubulointerstitial nephritis [None]
